FAERS Safety Report 11578014 (Version 1)
Quarter: 2015Q3

REPORT INFORMATION
  Report Type: Spontaneous
  Country: FR (occurrence: FR)
  Receive Date: 20150930
  Receipt Date: 20150930
  Transmission Date: 20151125
  Serious: Yes (Hospitalization, Other)
  Sender: FDA-Public Use
  Company Number: FR-NGX_02537_2014

PATIENT
  Sex: Male

DRUGS (1)
  1. QUTENZA [Suspect]
     Active Substance: CAPSAICIN
     Indication: MATERNAL EXPOSURE DURING PREGNANCY
     Dosage: 1 DF, UNKNOWN FREQ. (1 HOUR)
     Route: 064
     Dates: start: 20130906, end: 20130906

REACTIONS (5)
  - Premature baby [Unknown]
  - Foetal growth restriction [Unknown]
  - Foetal hypokinesia [Recovered/Resolved]
  - Neonatal respiratory distress syndrome [Recovered/Resolved]
  - Hypoglycaemia [Recovered/Resolved]

NARRATIVE: CASE EVENT DATE: 201405
